FAERS Safety Report 11136949 (Version 2)
Quarter: 2015Q2

REPORT INFORMATION
  Report Type: Spontaneous
  Country: US (occurrence: US)
  Receive Date: 20150526
  Receipt Date: 20150622
  Transmission Date: 20150821
  Serious: No
  Sender: FDA-Public Use
  Company Number: US-009507513-1505USA007692

PATIENT
  Age: 55 Year
  Sex: Male

DRUGS (3)
  1. SYLATRON [Suspect]
     Active Substance: PEGINTERFERON ALFA-2B
     Dosage: 444 MICROGRAM, QW
     Dates: start: 201503
  2. TRAMADOL HYDROCHLORIDE. [Concomitant]
     Active Substance: TRAMADOL HYDROCHLORIDE
     Dosage: UNK
  3. SYLATRON [Suspect]
     Active Substance: PEGINTERFERON ALFA-2B
     Indication: MALIGNANT MELANOMA
     Dosage: 444 MICROGRAM, QW
     Dates: start: 201501, end: 201502

REACTIONS (7)
  - Nausea [Recovering/Resolving]
  - Lack of injection site rotation [Unknown]
  - Fatigue [Recovering/Resolving]
  - Injection site pain [Recovering/Resolving]
  - Injection site ulcer [Recovering/Resolving]
  - Injection site irritation [Recovering/Resolving]
  - Injection site ulcer [Recovered/Resolved]

NARRATIVE: CASE EVENT DATE: 2015
